FAERS Safety Report 7029673-4 (Version None)
Quarter: 2010Q4

REPORT INFORMATION
  Report Type: 
  Country: None (occurrence: None)
  Receive Date: 20101005
  Receipt Date: 20101005
  Transmission Date: 20110411
  Serious: Yes (Life-Threatening, Other)
  Sender: FDA-Public Use
  Company Number: None

PATIENT
  Sex: Male
  Weight: 22.7 kg

DRUGS (2)
  1. KEPPRA [Suspect]
     Indication: EPILEPSY
     Dosage: 1.5 ML INCREASED TO 2 ML BID PO
     Route: 048
     Dates: start: 20010101, end: 20100401
  2. KEPPRA [Suspect]
     Indication: EPILEPSY
     Dosage: 2 ML INCREASED TO 3 ML BID PO
     Route: 048
     Dates: start: 20100401, end: 20100801

REACTIONS (2)
  - CONVULSION [None]
  - PRODUCT SUBSTITUTION ISSUE [None]
